FAERS Safety Report 22193193 (Version 1)
Quarter: 2023Q2

REPORT INFORMATION
  Report Type: Spontaneous
  Country: PT (occurrence: PT)
  Receive Date: 20230410
  Receipt Date: 20230410
  Transmission Date: 20230722
  Serious: Yes (Death, Hospitalization, Other)
  Sender: FDA-Public Use
  Company Number: PT-BAYER-2023A042788

PATIENT
  Age: 68 Year
  Sex: Male

DRUGS (4)
  1. NEXAVAR [Suspect]
     Active Substance: SORAFENIB
     Dosage: 400 MG, QD
  2. FUROSEMIDE [Concomitant]
     Active Substance: FUROSEMIDE
     Dosage: UNK
  3. OXAZEPAM [Concomitant]
     Active Substance: OXAZEPAM
  4. BACLOFEN [Concomitant]
     Active Substance: BACLOFEN

REACTIONS (14)
  - Hepatic encephalopathy [Fatal]
  - Oedema due to hepatic disease [Fatal]
  - Portal vein thrombosis [None]
  - Cardiac failure [None]
  - Myxoma [None]
  - Cardiac operation [None]
  - Hepatic mass [None]
  - Metastases to heart [None]
  - Hepatocellular carcinoma [None]
  - Dyspnoea [None]
  - Orthopnoea [None]
  - Oedema peripheral [None]
  - Hepatic lesion [None]
  - Off label use [None]
